FAERS Safety Report 15524380 (Version 1)
Quarter: 2018Q4

REPORT INFORMATION
  Report Type: Spontaneous
  Country: FR (occurrence: FR)
  Receive Date: 20181019
  Receipt Date: 20181019
  Transmission Date: 20190205
  Serious: Yes (Other)
  Sender: FDA-Public Use
  Company Number: FR-PFIZER INC-2018423264

PATIENT
  Sex: Female

DRUGS (5)
  1. PREGABALINE PFIZER [Suspect]
     Active Substance: PREGABALIN
     Dosage: 100 MG, 2ND WEEK
  2. PREGABALINE BIOGARAN [Suspect]
     Active Substance: PREGABALIN
     Dosage: 150 MG, QD, 3RD WEEK
  3. KLIPAL [CODEINE PHOSPHATE HEMIHYDRATE;PARACETAMOL] [Concomitant]
     Indication: PAIN
     Dosage: 1 DF, QD
  4. PREGABALINE PFIZER [Suspect]
     Active Substance: PREGABALIN
     Dosage: 50 MG, FIRST WEEK
  5. PREGABALINE BIOGARAN [Suspect]
     Active Substance: PREGABALIN
     Indication: PAIN
     Dosage: 150 MG, BID (MORNING AND EVENING)

REACTIONS (5)
  - Myalgia [Unknown]
  - Alopecia [Unknown]
  - Limb discomfort [Unknown]
  - Vision blurred [Unknown]
  - Diplopia [Unknown]

NARRATIVE: CASE EVENT DATE: 201808
